FAERS Safety Report 9340719 (Version 2)
Quarter: 2013Q3

REPORT INFORMATION
  Report Type: Spontaneous
  Country: FR (occurrence: FR)
  Receive Date: 20130610
  Receipt Date: 20130917
  Transmission Date: 20140515
  Serious: Yes (Hospitalization, Other)
  Sender: FDA-Public Use
  Company Number: FR-GLAXOSMITHKLINE-B0897753A

PATIENT
  Age: 69 Year
  Sex: Female

DRUGS (5)
  1. ZELITREX [Suspect]
     Indication: PRODUCT USED FOR UNKNOWN INDICATION
     Dosage: 1G THREE TIMES PER DAY
     Route: 048
     Dates: start: 20130515, end: 20130522
  2. POLARAMINE [Suspect]
     Indication: PRODUCT USED FOR UNKNOWN INDICATION
     Dosage: 2MG THREE TIMES PER DAY
     Route: 048
     Dates: start: 20130515, end: 20130522
  3. LODALES [Concomitant]
     Indication: HYPERCHOLESTEROLAEMIA
     Route: 048
  4. DOLIPRANE [Concomitant]
     Indication: PRODUCT USED FOR UNKNOWN INDICATION
     Route: 048
  5. EFFERALGAN CODEINE [Concomitant]
     Indication: PRODUCT USED FOR UNKNOWN INDICATION
     Route: 048

REACTIONS (7)
  - Confusional state [Recovered/Resolved]
  - Movement disorder [Recovered/Resolved]
  - Blood pressure increased [Recovered/Resolved]
  - Memory impairment [Recovered/Resolved]
  - Thinking abnormal [Recovered/Resolved]
  - Slow speech [Recovered/Resolved]
  - Disturbance in attention [Recovered/Resolved]
